FAERS Safety Report 7575009-X (Version None)
Quarter: 2011Q2

REPORT INFORMATION
  Report Type: 
  Country: None (occurrence: None)
  Receive Date: 20110627
  Receipt Date: 20110615
  Transmission Date: 20111010
  Serious: Yes (Other)
  Sender: FDA-Public Use
  Company Number: DE-TYCO HEALTHCARE/MALLINCKRODT-T201101258

PATIENT
  Sex: Female

DRUGS (2)
  1. EXALGO [Suspect]
     Indication: MYALGIA
  2. EXALGO [Suspect]
     Indication: ARTHRALGIA
     Dosage: 4 MG, QD
     Route: 048

REACTIONS (4)
  - MYALGIA [None]
  - DEPRESSION [None]
  - ARTHRALGIA [None]
  - GAIT DISTURBANCE [None]
